FAERS Safety Report 5193343-8 (Version None)
Quarter: 2006Q4

REPORT INFORMATION
  Report Type: 
  Country: None (occurrence: None)
  Receive Date: 20061228
  Receipt Date: 20061003
  Transmission Date: 20070319
  Serious: No
  Sender: FDA-Public Use
  Company Number: US-GLAXOSMITHKLINE-A0622313A

PATIENT
  Sex: Male

DRUGS (5)
  1. AVODART [Suspect]
     Indication: BENIGN PROSTATIC HYPERPLASIA
     Dosage: .5MG PER DAY
     Route: 048
     Dates: start: 20060601
  2. CLARITIN [Concomitant]
  3. PRILOSEC [Concomitant]
  4. VITAMINS [Concomitant]
  5. VITAMIN A [Concomitant]

REACTIONS (2)
  - LIBIDO DECREASED [None]
  - SEMEN VOLUME DECREASED [None]
